FAERS Safety Report 8264871-3 (Version None)
Quarter: 2012Q2

REPORT INFORMATION
  Report Type: 
  Country: None (occurrence: None)
  Receive Date: 20120406
  Receipt Date: 20120326
  Transmission Date: 20120825
  Serious: Yes (Hospitalization)
  Sender: FDA-Public Use
  Company Number: SE-ELI_LILLY_AND_COMPANY-SE201202008418

PATIENT
  Sex: Female

DRUGS (6)
  1. CYMBALTA [Suspect]
     Dosage: 30 MG, QD
     Dates: start: 20120116, end: 20120129
  2. ALVEDON [Concomitant]
     Dosage: UNK, UNKNOWN
     Route: 065
  3. CYMBALTA [Suspect]
     Indication: DEPRESSION
     Dosage: 90 MG, QD
     Route: 048
     Dates: start: 20100629
  4. DESLORATADINE [Concomitant]
     Dosage: UNK, UNKNOWN
     Route: 065
  5. CYMBALTA [Suspect]
     Dosage: 60 MG, QD
     Dates: start: 20120112
  6. TRAMADOL HCL [Concomitant]
     Dosage: UNK, UNKNOWN
     Route: 065

REACTIONS (6)
  - VOMITING [None]
  - MUSCULOSKELETAL PAIN [None]
  - DRUG WITHDRAWAL SYNDROME [None]
  - MYALGIA [None]
  - INTENTIONAL DRUG MISUSE [None]
  - MUSCLE SPASMS [None]
